FAERS Safety Report 18514376 (Version 1)
Quarter: 2020Q4

REPORT INFORMATION
  Report Type: Other
  Country: CA (occurrence: CA)
  Receive Date: 20201117
  Receipt Date: 20201117
  Transmission Date: 20210114
  Serious: Yes (Hospitalization, Other)
  Sender: FDA-Public Use
  Company Number: CA-CELLTRION INC.-2020CA031328

PATIENT

DRUGS (12)
  1. RITUXIMAB (UNKNOWN) [Suspect]
     Active Substance: RITUXIMAB
     Dosage: 675.0 MILLIGRAM, 1 EVERY 1 WEEKS
     Route: 042
  2. METHYLPREDNISOLONE SODIUM SUCCINATE. [Concomitant]
     Active Substance: METHYLPREDNISOLONE SODIUM SUCCINATE
  3. RANITIDINE. [Concomitant]
     Active Substance: RANITIDINE
  4. SEPTRA [Concomitant]
     Active Substance: SULFAMETHOXAZOLE\TRIMETHOPRIM
  5. RITUXIMAB (UNKNOWN) [Suspect]
     Active Substance: RITUXIMAB
     Dosage: 675.0 MILLIGRAM, 1 EVERY 1 WEEKS
     Route: 042
  6. CALCIUM [Concomitant]
     Active Substance: CALCIUM
  7. RITUXIMAB (UNKNOWN) [Suspect]
     Active Substance: RITUXIMAB
     Indication: ANTI-NEUTROPHIL CYTOPLASMIC ANTIBODY POSITIVE VASCULITIS
     Dosage: 650.0 MILLIGRAM, 1 EVERY 1 WEEKS
     Route: 042
  8. BENADRYL [Concomitant]
     Active Substance: DIPHENHYDRAMINE HYDROCHLORIDE
  9. CALCIUM CARBONATE. [Concomitant]
     Active Substance: CALCIUM CARBONATE
  10. RITUXIMAB (UNKNOWN) [Suspect]
     Active Substance: RITUXIMAB
     Dosage: 675.0 MILLIGRAM, 1 EVERY 1 WEEKS
     Route: 042
  11. PREDNISONE. [Suspect]
     Active Substance: PREDNISONE
     Indication: PRODUCT USED FOR UNKNOWN INDICATION
     Route: 065
  12. RITUXIMAB (UNKNOWN) [Suspect]
     Active Substance: RITUXIMAB
     Dosage: 650.0 MILLIGRAM, 1 EVERY 1 WEEKS
     Route: 042

REACTIONS (4)
  - Immunosuppression [Not Recovered/Not Resolved]
  - Device related infection [Not Recovered/Not Resolved]
  - Peritonitis [Not Recovered/Not Resolved]
  - Abdominal pain [Not Recovered/Not Resolved]
